FAERS Safety Report 8524968-7 (Version None)
Quarter: 2012Q3

REPORT INFORMATION
  Report Type: 
  Country: None (occurrence: None)
  Receive Date: 20120720
  Receipt Date: 20120629
  Transmission Date: 20120928
  Serious: Yes (Hospitalization)
  Sender: FDA-Public Use
  Company Number: ES-JNJFOC-20120504346

PATIENT
  Age: 34 Year
  Sex: Female
  Weight: 60 kg

DRUGS (4)
  1. REMICADE [Suspect]
     Indication: COLITIS ULCERATIVE
     Route: 042
  2. PREDNISONE [Concomitant]
     Indication: COLITIS ULCERATIVE
     Route: 048
     Dates: end: 20120614
  3. MESALAMINE [Concomitant]
     Route: 065
  4. MESALAMINE [Concomitant]
     Indication: COLITIS ULCERATIVE
     Dosage: 2,4 MG
     Route: 048
     Dates: end: 20120614

REACTIONS (3)
  - MATERNAL EXPOSURE DURING PREGNANCY [None]
  - COLECTOMY TOTAL [None]
  - ILEOSTOMY [None]
